FAERS Safety Report 14547815 (Version 1)
Quarter: 2018Q1

REPORT INFORMATION
  Report Type: Spontaneous
  Country: US (occurrence: US)
  Receive Date: 20180219
  Receipt Date: 20180219
  Transmission Date: 20180509
  Serious: No
  Sender: FDA-Public Use
  Company Number: US-GLAXOSMITHKLINE-US2018023273

PATIENT

DRUGS (3)
  1. NICOTINE INHALATION POWDER [Suspect]
     Active Substance: NICOTINE
     Indication: SMOKING CESSATION THERAPY
     Dosage: UNK
  2. NICODERM CQ [Suspect]
     Active Substance: NICOTINE
     Indication: SMOKING CESSATION THERAPY
     Dosage: 14 MG, UNK
  3. NICORETTE [Suspect]
     Active Substance: NICOTINE
     Indication: SMOKING CESSATION THERAPY
     Dosage: UNK

REACTIONS (8)
  - Malaise [Unknown]
  - Abnormal dreams [Unknown]
  - Anxiety [Unknown]
  - Application site pruritus [Unknown]
  - Poor quality sleep [Unknown]
  - Wrong technique in product usage process [Unknown]
  - Sleep disorder [Unknown]
  - Nicotine dependence [Unknown]
